FAERS Safety Report 19077874 (Version 1)
Quarter: 2021Q1

REPORT INFORMATION
  Report Type: Spontaneous
  Country: JP (occurrence: JP)
  Receive Date: 20210331
  Receipt Date: 20210331
  Transmission Date: 20210420
  Serious: Yes (Other)
  Sender: FDA-Public Use
  Company Number: JP-ROCHE-2799814

PATIENT
  Sex: Male

DRUGS (5)
  1. ACTEMRA [Concomitant]
     Active Substance: TOCILIZUMAB
     Indication: CASTLEMAN^S DISEASE
     Route: 042
  2. PREDONINE [Concomitant]
     Active Substance: PREDNISOLONE
     Indication: CASTLEMAN^S DISEASE
     Route: 042
  3. HUMAN NORMAL IMMUNOGLOBULIN [Concomitant]
     Active Substance: HUMAN IMMUNOGLOBULIN G
     Indication: CASTLEMAN^S DISEASE
     Route: 042
  4. RITUXAN [Suspect]
     Active Substance: RITUXIMAB
     Indication: CASTLEMAN^S DISEASE
     Route: 041
     Dates: start: 202008
  5. CICLOSPORIN [Concomitant]
     Active Substance: CYCLOSPORINE
     Indication: CASTLEMAN^S DISEASE
     Route: 042

REACTIONS (2)
  - Off label use [Unknown]
  - Sepsis [Unknown]

NARRATIVE: CASE EVENT DATE: 202009
